FAERS Safety Report 5652928-2 (Version None)
Quarter: 2008Q1

REPORT INFORMATION
  Report Type: 
  Country: None (occurrence: None)
  Receive Date: 20080306
  Receipt Date: 20080226
  Transmission Date: 20080703
  Serious: Yes (Other)
  Sender: FDA-Public Use
  Company Number: US-ROCHE-549534

PATIENT
  Age: 3 Year
  Sex: Male

DRUGS (2)
  1. TAMIFLU [Suspect]
     Indication: DRUG USE FOR UNKNOWN INDICATION
     Route: 065
     Dates: start: 20080218, end: 20080222
  2. COUGH PREPARATION NOS [Concomitant]
     Indication: COUGH

REACTIONS (1)
  - ABNORMAL BEHAVIOUR [None]
